FAERS Safety Report 5649003-X (Version None)
Quarter: 2008Q1

REPORT INFORMATION
  Report Type: 
  Country: None (occurrence: None)
  Receive Date: 20080304
  Receipt Date: 20080227
  Transmission Date: 20080703
  Serious: Yes (Other)
  Sender: FDA-Public Use
  Company Number: JP-MERCK-0802USA06357

PATIENT
  Age: 30 Year
  Sex: Male

DRUGS (3)
  1. INDOCIN [Suspect]
     Route: 048
  2. INDOCIN [Suspect]
     Route: 048
  3. PREDNISOLONE [Concomitant]
     Route: 065

REACTIONS (3)
  - LARGE INTESTINAL ULCER [None]
  - LARGE INTESTINE PERFORATION [None]
  - PERITONITIS [None]
